FAERS Safety Report 4611336-3 (Version None)
Quarter: 2005Q2

REPORT INFORMATION
  Report Type: 
  Country: None (occurrence: None)
  Receive Date: 20050311
  Receipt Date: 20041207
  Transmission Date: 20051028
  Serious: No
  Sender: FDA-Public Use
  Company Number: 2004-BP-13360BP

PATIENT
  Age: 78 Year
  Sex: Male
  Weight: 65.3 kg

DRUGS (6)
  1. SPIRIVA [Suspect]
     Indication: CHRONIC OBSTRUCTIVE PULMONARY DISEASE
     Dosage: (18 MCG), IH
     Route: 055
     Dates: end: 20041130
  2. SYNTHROID [Concomitant]
  3. NEURONTIN [Concomitant]
  4. ALLEGRA [Concomitant]
  5. VYTORIN [Concomitant]
  6. RANITIDINE [Concomitant]

REACTIONS (1)
  - APHTHOUS STOMATITIS [None]
